FAERS Safety Report 11305305 (Version 1)
Quarter: 2015Q3

REPORT INFORMATION
  Report Type: Spontaneous
  Country: US (occurrence: US)
  Receive Date: 20150723
  Receipt Date: 20150723
  Transmission Date: 20151125
  Serious: No
  Sender: FDA-Public Use
  Company Number: US-JNJFOC-20150419532

PATIENT
  Age: 66 Year
  Sex: Female
  Weight: 48.99 kg

DRUGS (5)
  1. ZYRTEC [Suspect]
     Active Substance: CETIRIZINE HYDROCHLORIDE
     Indication: MULTIPLE ALLERGIES
     Dosage: 1/2 TABLET, AS NEEDED, STARTED ABOUT 2 WEEKS AGO
     Route: 048
  2. ZYRTEC [Suspect]
     Active Substance: CETIRIZINE HYDROCHLORIDE
     Indication: SINUS CONGESTION
     Dosage: 1/2 TABLET, AS NEEDED, STARTED ABOUT 2 WEEKS AGO
     Route: 048
  3. ZYRTEC [Suspect]
     Active Substance: CETIRIZINE HYDROCHLORIDE
     Indication: COUGH
     Dosage: 1/2 TABLET, AS NEEDED, STARTED ABOUT 2 WEEKS AGO
     Route: 048
  4. CARDIAC MEDICATION [Concomitant]
     Active Substance: UNSPECIFIED INGREDIENT
     Indication: HEART RATE ABNORMAL
     Route: 065
  5. ZYRTEC [Suspect]
     Active Substance: CETIRIZINE HYDROCHLORIDE
     Indication: SINUS OPERATION
     Dosage: 1/2 TABLET, AS NEEDED, STARTED ABOUT 2 WEEKS AGO
     Route: 048

REACTIONS (3)
  - Wrong technique in product usage process [Unknown]
  - Off label use [Unknown]
  - Wrong patient received medication [Unknown]
